FAERS Safety Report 20148179 (Version 4)
Quarter: 2022Q1

REPORT INFORMATION
  Report Type: Report from Study
  Country: US (occurrence: US)
  Receive Date: 20211204
  Receipt Date: 20220208
  Transmission Date: 20220423
  Serious: Yes (Other)
  Sender: FDA-Public Use
  Company Number: US-NOVARTISTESTPH-NVSC2021US275596

PATIENT
  Sex: Female

DRUGS (5)
  1. TABRECTA [Suspect]
     Active Substance: CAPMATINIB
     Indication: Lung neoplasm malignant
     Dosage: 400 MG, BID (2 TABLETS)
     Route: 048
     Dates: start: 202110
  2. TABRECTA [Suspect]
     Active Substance: CAPMATINIB
     Dosage: 200 MG, BID (TABLET)
     Route: 048
     Dates: start: 202110
  3. TABRECTA [Suspect]
     Active Substance: CAPMATINIB
     Dosage: 200 MG, BID (1 TABLET)
     Route: 048
     Dates: start: 20211201
  4. TABRECTA [Suspect]
     Active Substance: CAPMATINIB
     Dosage: 200 MG, BID (1 TABLET)
     Route: 065
     Dates: start: 20220107
  5. TABRECTA [Suspect]
     Active Substance: CAPMATINIB
     Dosage: 200 MG, BID (1 TABLET)
     Route: 065
     Dates: start: 20220203

REACTIONS (3)
  - Thrombosis [Unknown]
  - Blood creatinine increased [Unknown]
  - Joint swelling [Recovering/Resolving]
